FAERS Safety Report 25872669 (Version 4)
Quarter: 2025Q4

REPORT INFORMATION
  Report Type: Spontaneous
  Country: EU (occurrence: EU)
  Receive Date: 20251002
  Receipt Date: 20251118
  Transmission Date: 20260118
  Serious: Yes (Life-Threatening, Hospitalization, Other)
  Sender: AUROBINDO
  Company Number: EU-FMX-PRT-10-25-LIT

PATIENT
  Age: 79 Year
  Sex: Female

DRUGS (9)
  1. AMOXICILLIN [Interacting]
     Active Substance: AMOXICILLIN
     Indication: Bronchitis
     Dosage: 0 MILLIGRAM
     Route: 065
  2. AMOXICILLIN [Interacting]
     Active Substance: AMOXICILLIN
     Indication: Antibiotic prophylaxis
  3. EMPAGLIFLOZIN [Interacting]
     Active Substance: EMPAGLIFLOZIN
     Indication: Product used for unknown indication
     Dosage: UNK
     Route: 065
  4. OMEPRAZOLE [Suspect]
     Active Substance: OMEPRAZOLE
     Indication: Product used for unknown indication
     Dosage: 40 MILLIGRAM
     Route: 065
  5. ACETAMINOPHEN [Suspect]
     Active Substance: ACETAMINOPHEN
     Indication: Bronchitis
     Dosage: 0 MILLIGRAM
     Route: 065
  6. ACETAMINOPHEN [Suspect]
     Active Substance: ACETAMINOPHEN
     Indication: Antibiotic prophylaxis
  7. PERINDOPRIL [Suspect]
     Active Substance: PERINDOPRIL
     Indication: Product used for unknown indication
     Dosage: UNK
     Route: 065
  8. INDAPAMIDE [Suspect]
     Active Substance: INDAPAMIDE
     Indication: Product used for unknown indication
     Dosage: UNK
     Route: 065
  9. ACETAMINOPHEN [Suspect]
     Active Substance: ACETAMINOPHEN
     Indication: Product used for unknown indication
     Dosage: UNK
     Route: 065

REACTIONS (15)
  - Acute kidney injury [Unknown]
  - Oliguria [Unknown]
  - Hyperkalaemia [Unknown]
  - Confusional state [Unknown]
  - Hypernatraemia [Unknown]
  - Tubulointerstitial nephritis [Unknown]
  - Metabolic acidosis [Unknown]
  - Nephritis allergic [Unknown]
  - Drug interaction [Unknown]
  - Renal vessel disorder [Unknown]
  - Multiple injuries [Unknown]
  - Drug hypersensitivity [Unknown]
  - Multiple drug therapy [Unknown]
  - Vasoconstriction [Unknown]
  - Off label use [Unknown]
